FAERS Safety Report 10764416 (Version 3)
Quarter: 2015Q1

REPORT INFORMATION
  Report Type: Report from Study
  Country: US (occurrence: US)
  Receive Date: 20150205
  Receipt Date: 20150223
  Transmission Date: 20150721
  Serious: Yes (Hospitalization)
  Sender: FDA-Public Use
  Company Number: US-BEH-2015048347

PATIENT
  Age: 66 Year
  Sex: Male
  Weight: 94.17 kg

DRUGS (5)
  1. PLACEBO [Suspect]
     Active Substance: UNSPECIFIED INGREDIENT
     Indication: COMPLICATIONS OF TRANSPLANTED KIDNEY
     Dates: start: 20150104, end: 20150105
  2. CYCLOSPORINE. [Concomitant]
     Active Substance: CYCLOSPORINE
     Dosage: AM
     Route: 048
  3. MYFORTIC [Concomitant]
     Active Substance: MYCOPHENOLATE SODIUM
  4. CYCLOSPORINE. [Concomitant]
     Active Substance: CYCLOSPORINE
     Dosage: PM
     Route: 048
  5. PROGRAF [Concomitant]
     Active Substance: TACROLIMUS\TACROLIMUS ANHYDROUS

REACTIONS (1)
  - Deep vein thrombosis [Recovering/Resolving]

NARRATIVE: CASE EVENT DATE: 20150123
